FAERS Safety Report 8261043-3 (Version None)
Quarter: 2012Q2

REPORT INFORMATION
  Report Type: 
  Country: None (occurrence: None)
  Receive Date: 20120405
  Receipt Date: 20120328
  Transmission Date: 20120825
  Serious: No
  Sender: FDA-Public Use
  Company Number: PHHY2012JP021553

PATIENT
  Age: 84 Year
  Sex: Male

DRUGS (5)
  1. LANSOPRAZOLE [Concomitant]
     Route: 048
  2. TAMSULOSIN HCL [Concomitant]
     Route: 048
  3. NIVADIL [Concomitant]
     Route: 048
  4. DIOVAN [Suspect]
     Indication: HYPERTENSION
     Dosage: 80 MG
     Route: 048
  5. ASPIRIN [Concomitant]
     Route: 048

REACTIONS (1)
  - OEDEMA [None]
